FAERS Safety Report 4984232-X (Version None)
Quarter: 2006Q2

REPORT INFORMATION
  Report Type: 
  Country: None (occurrence: None)
  Receive Date: 20060420
  Receipt Date: 20060410
  Transmission Date: 20061013
  Serious: Yes (Death)
  Sender: FDA-Public Use
  Company Number: 083-20785-06040502

PATIENT

DRUGS (4)
  1. THALIDOMIDE - PHARMION (THALIDOMIDE) [Suspect]
     Indication: MULTIPLE MYELOMA
     Dosage: 100 MG CONTINUOUS, DURING THE 6 MPT CYCLES AND AS MAINTENANCE, QD
  2. MELPHALAN (MELPHALAN) [Suspect]
     Indication: MULTIPLE MYELOMA
     Dosage: 4 MG/M2, QD; DAYS 1-7 EVERY 4 WKS, FOR 6 CYCLES, ORAL
     Route: 048
  3. PREDNISONE TAB [Suspect]
     Indication: MULTIPLE MYELOMA
     Dosage: 40 MG/M2, QD, DAYS 1-7 EVERY 4 WKS, FOR 6 CYCLES, ORAL
     Route: 048
  4. ENOXAPARIN SODIUM [Suspect]
     Indication: THROMBOSIS PROPHYLAXIS
     Dosage: 40 MG, QD, FOR FIRST 4 CYCLES, SUBCUTANEOUS
     Route: 058

REACTIONS (2)
  - VENTRICULAR FIBRILLATION [None]
  - VENTRICULAR TACHYCARDIA [None]
